FAERS Safety Report 7325334-2 (Version None)
Quarter: 2011Q1

REPORT INFORMATION
  Report Type: 
  Country: None (occurrence: None)
  Receive Date: 20110302
  Receipt Date: 20100908
  Transmission Date: 20110831
  Serious: Yes (Hospitalization)
  Sender: FDA-Public Use
  Company Number: US-BAYER-201023302NA

PATIENT
  Sex: Female
  Weight: 68.027 kg

DRUGS (9)
  1. ALBUTEROL [Concomitant]
  2. NORCO [Concomitant]
  3. ENOXAPARIN [Concomitant]
  4. YAZ [Suspect]
     Indication: ORAL CONTRACEPTION
     Dosage: UNK
     Route: 048
     Dates: start: 20080301, end: 20080901
  5. YAZ [Suspect]
     Indication: HORMONE THERAPY
  6. YASMIN [Suspect]
     Indication: ORAL CONTRACEPTION
     Dosage: UNK
     Route: 048
     Dates: start: 20080901
  7. ATIVAN [Concomitant]
  8. MULTI-VITAMIN [Concomitant]
  9. YASMIN [Suspect]
     Indication: HORMONE THERAPY

REACTIONS (3)
  - INJURY [None]
  - RENAL VEIN THROMBOSIS [None]
  - BACK PAIN [None]
